FAERS Safety Report 13076117 (Version 2)
Quarter: 2017Q1

REPORT INFORMATION
  Report Type: Spontaneous
  Country: AT (occurrence: AT)
  Receive Date: 20161230
  Receipt Date: 20170102
  Transmission Date: 20170428
  Serious: Yes (Other)
  Sender: FDA-Public Use
  Company Number: PHHY2016AT167125

PATIENT
  Sex: Female

DRUGS (2)
  1. GILENYA [Suspect]
     Active Substance: FINGOLIMOD HYDROCHLORIDE
     Indication: RELAPSING-REMITTING MULTIPLE SCLEROSIS
     Dosage: 0.5 MG, UNK
     Route: 048
     Dates: start: 20160802, end: 20160830
  2. SERTRALINE [Concomitant]
     Active Substance: SERTRALINE HYDROCHLORIDE
     Indication: PRODUCT USED FOR UNKNOWN INDICATION
     Route: 065

REACTIONS (5)
  - Dermatitis allergic [Recovered/Resolved]
  - Erythema [Unknown]
  - Flushing [Unknown]
  - Liver function test increased [Recovered/Resolved]
  - Pruritus [Unknown]

NARRATIVE: CASE EVENT DATE: 20160829
